FAERS Safety Report 5445760-6 (Version None)
Quarter: 2007Q3

REPORT INFORMATION
  Report Type: 
  Country: None (occurrence: None)
  Receive Date: 20070904
  Receipt Date: 20070820
  Transmission Date: 20080115
  Serious: Yes (Other)
  Sender: FDA-Public Use
  Company Number: GXKR2007US07128

PATIENT
  Age: 58 Year
  Sex: Female

DRUGS (2)
  1. MYCOPHENOLATE MOFETIL [Suspect]
     Indication: PEMPHIGUS
     Dosage: 500 MG, BID,
  2. PREDNISONE                              (PREDNISONE) UNKNOWN [Suspect]
     Indication: PEMPHIGUS
     Dosage: 20-30 MG,; 10 MG,; 15 MG,; 5 MG,

REACTIONS (8)
  - ANAEMIA [None]
  - CATARACT [None]
  - FATIGUE [None]
  - OBESITY [None]
  - OSTEONECROSIS [None]
  - OSTEOPOROSIS [None]
  - PALLOR [None]
  - TYPE 2 DIABETES MELLITUS [None]
